FAERS Safety Report 5463409-3 (Version None)
Quarter: 2007Q3

REPORT INFORMATION
  Report Type: 
  Country: None (occurrence: None)
  Receive Date: 20070920
  Receipt Date: 20070912
  Transmission Date: 20080115
  Serious: Yes (Hospitalization)
  Sender: FDA-Public Use
  Company Number: US-AMGEN-QUU243117

PATIENT
  Sex: Female

DRUGS (3)
  1. ENBREL [Suspect]
     Indication: RHEUMATOID ARTHRITIS
     Route: 058
     Dates: start: 20040101
  2. PLAQUENIL [Concomitant]
     Route: 048
     Dates: start: 20020101
  3. METHOTREXATE [Concomitant]
     Route: 048
     Dates: start: 20040101

REACTIONS (1)
  - KNEE ARTHROPLASTY [None]
